FAERS Safety Report 20675127 (Version 2)
Quarter: 2022Q2

REPORT INFORMATION
  Report Type: Spontaneous
  Country: US (occurrence: US)
  Receive Date: 20220405
  Receipt Date: 20220412
  Transmission Date: 20220721
  Serious: Yes (Other)
  Sender: FDA-Public Use
  Company Number: US-PFIZER INC-202200500394

PATIENT
  Age: 8 Year
  Sex: Female

DRUGS (1)
  1. METRONIDAZOLE [Suspect]
     Active Substance: METRONIDAZOLE
     Indication: Dental discomfort
     Dosage: UNK

REACTIONS (5)
  - Neuropathy peripheral [Unknown]
  - Optic neuropathy [Unknown]
  - Papilloedema [Unknown]
  - Muscle twitching [Unknown]
  - Arthralgia [Unknown]

NARRATIVE: CASE EVENT DATE: 20220201
